FAERS Safety Report 7328804-6 (Version None)
Quarter: 2011Q1

REPORT INFORMATION
  Report Type: 
  Country: None (occurrence: None)
  Receive Date: 20110303
  Receipt Date: 20110223
  Transmission Date: 20110831
  Serious: Yes (Disabling, Other)
  Sender: FDA-Public Use
  Company Number: GB-ROCHE-759387

PATIENT
  Age: 59 Year
  Sex: Female

DRUGS (9)
  1. ETANERCEPT [Concomitant]
     Route: 065
  2. METHOTREXATE [Concomitant]
     Route: 065
     Dates: start: 19860101
  3. BUTRANS [Concomitant]
     Route: 065
  4. MYOCRISIN [Concomitant]
     Route: 065
  5. ROACTEMRA [Suspect]
     Route: 042
     Dates: start: 20101223, end: 20110126
  6. FOLIC ACID [Concomitant]
     Route: 065
  7. ACETAMINOPHEN WITH PROPOXYPHENE HCL TAB [Concomitant]
     Route: 065
  8. D-PENICILLAMINE [Concomitant]
     Route: 065
  9. CALCICHEW D3 [Concomitant]
     Route: 065

REACTIONS (3)
  - EYE PAIN [None]
  - LENS DISORDER [None]
  - BLINDNESS [None]
